FAERS Safety Report 5589633-7 (Version None)
Quarter: 2008Q1

REPORT INFORMATION
  Report Type: 
  Country: None (occurrence: None)
  Receive Date: 20080114
  Receipt Date: 20080103
  Transmission Date: 20080703
  Serious: Yes (Other)
  Sender: FDA-Public Use
  Company Number: B0360743A

PATIENT
  Age: 43 Year
  Sex: Female

DRUGS (4)
  1. PAROXETINE HYDROCHLORIDE [Suspect]
     Route: 065
     Dates: start: 20000202
  2. PAROXETINE HYDROCHLORIDE [Suspect]
     Route: 065
  3. BUPROPION HYDROCHLORIDE [Concomitant]
     Route: 065
  4. CIPRAMIL [Concomitant]
     Dates: start: 20021010

REACTIONS (6)
  - AGGRESSION [None]
  - ANGER [None]
  - IRRITABILITY [None]
  - PAROSMIA [None]
  - SUICIDAL IDEATION [None]
  - WITHDRAWAL SYNDROME [None]
